FAERS Safety Report 23344134 (Version 3)
Quarter: 2024Q2

REPORT INFORMATION
  Report Type: Report from Study
  Country: US (occurrence: US)
  Receive Date: 20231227
  Receipt Date: 20240426
  Transmission Date: 20240715
  Serious: Yes (Other)
  Sender: FDA-Public Use
  Company Number: US-ABBVIE-5558894

PATIENT
  Age: 95 Year
  Sex: Female
  Weight: 70 kg

DRUGS (25)
  1. SKYRIZI [Suspect]
     Active Substance: RISANKIZUMAB-RZAA
     Indication: Psoriasis
     Route: 058
     Dates: start: 20210112
  2. ASPIRIN [Concomitant]
     Active Substance: ASPIRIN
     Indication: Product used for unknown indication
     Dosage: EVERY DAY; 09:00 AM?FORM STRENGTH: 81 MILLIGRAM
     Route: 048
  3. TUSSIN DM [Concomitant]
     Active Substance: DEXTROMETHORPHAN HYDROBROMIDE\GUAIFENESIN
     Indication: Product used for unknown indication
     Dosage: LIQUID; 10-100 MG/5 ML GIVE LOML BY MOUTH EVERY 6 HOURS AS NEEDED FOR COUGH.
     Route: 048
     Dates: start: 20230213
  4. NYAMYC [Concomitant]
     Active Substance: NYSTATIN
     Indication: Product used for unknown indication
     Dosage: POWDER; 100,000 UNIT/GRAM;
     Dates: start: 20231127
  5. CETIRIZINE [Concomitant]
     Active Substance: CETIRIZINE HYDROCHLORIDE
     Indication: Product used for unknown indication
     Dosage: EVERY DAY; 09:00 AM?FORM STRENGTH: 10 MILLIGRAM
     Route: 048
     Dates: start: 20230213
  6. VITAMIN B12 [Concomitant]
     Active Substance: CYANOCOBALAMIN
     Indication: Product used for unknown indication
     Dosage: GIVE 1 LOZENGE SUBUNGUALLY DAILY. EVERY DAY; 09:00 AM
     Route: 060
     Dates: start: 20230213
  7. CARBOXYMETHYLCELLULOSE SODIUM [Concomitant]
     Active Substance: CARBOXYMETHYLCELLULOSE SODIUM
     Indication: Product used for unknown indication
     Dosage: INSTILL 1 DROP IN BOTH EYES FOUR TIMES A DAY.?CARBOXYMETHYLCELLULOSE SODIUM [OTC]?FORM STRENGTH: ...
     Dates: start: 20230602
  8. TRIAMCINOLONE ACETONIDE [Concomitant]
     Active Substance: TRIAMCINOLONE ACETONIDE
     Indication: Rash
     Dosage: APPLY TOPICALLY TO THE AFFECTED AREA OF RASH TWICE DAILY AS NEEDED FOR UPTO 2 WEEKS PER MONTH FOR...
     Route: 061
     Dates: start: 20230809
  9. TRIAMCINOLONE ACETONIDE [Concomitant]
     Active Substance: TRIAMCINOLONE ACETONIDE
     Indication: Rash
     Dosage: APPLY TOPICALLY TO RASH ON FACE TWICE DAILY AS NEEDED TWICE A DAY AS NEEDED?FORM STRENGTH: 0.1 PE...
     Dates: start: 20230320
  10. VITAMIN D3 [Concomitant]
     Active Substance: CHOLECALCIFEROL
     Indication: Vitamin supplementation
     Dosage: 50 MCG (2,000 UNIT)?VITAMIN D3 (CHOLECALCLFEROL (VITAMIN D3))
     Dates: start: 20230213
  11. DICLOFENAC SODIUM [Concomitant]
     Active Substance: DICLOFENAC\DICLOFENAC SODIUM
     Indication: Pain
     Dosage: APPLY 2GM TOPICALLY TO LEFT SHOULDER FOUR TIMES DAILY AS NEEDED FOR PAIN.?DICLOFENAC SODIUM [OTC]...
     Dates: start: 20231125
  12. CALCIUM CITRATE\CHOLECALCIFEROL [Concomitant]
     Active Substance: CALCIUM CITRATE\CHOLECALCIFEROL
     Indication: Product used for unknown indication
     Dosage: 200 MG-6.25 MCG (250 UNIT) DOSE:3 TIMES A DAY
     Dates: start: 20230213
  13. COMBIVENT RESPIMAT [Concomitant]
     Active Substance: ALBUTEROL SULFATE\IPRATROPIUM BROMIDE
     Indication: Dyspnoea
     Dosage: MIST; 20-100 MCG/ACTUATIONONE INHALATION FOUR TIMES A DAY, NOT TO EXCEED 6 INHALATIONS IN 24 HOUR...
     Dates: start: 20230726
  14. COMBIVENT RESPIMAT [Concomitant]
     Active Substance: ALBUTEROL SULFATE\IPRATROPIUM BROMIDE
     Indication: Dyspnoea
     Dosage: MIST; 20-100 MCG/ACTUATION?COMBIVENT RESPIMAT (IPRATROPIUM-ALBUTEROL) LAST ADMIN DATE 2023
     Dates: start: 20230213
  15. OMEPRAZOLE [Concomitant]
     Active Substance: OMEPRAZOLE
     Indication: Product used for unknown indication
     Dosage: CAPSULE,DELAYED RELEASE{DR/EC)?FORM STRENGTH: 20 MILLIGRAM
     Route: 048
     Dates: start: 20230213
  16. ESCITALOPRAM OXALATE [Concomitant]
     Active Substance: ESCITALOPRAM OXALATE
     Indication: Product used for unknown indication
     Dosage: FORM STRENGTH: 10 MILLIGRAM
     Route: 048
     Dates: start: 20230726
  17. VITAMIN D2 [Concomitant]
     Active Substance: ERGOCALCIFEROL
     Indication: Vitamin supplementation
     Dosage: 1,250 MCG (50,000 UNIT) EVERY WEEK ON SATURDAY; 09:00 AM?VITAMIN D2 (ERGOCALCIFEROL (VITAMIN D2)J
     Dates: start: 20230213
  18. DOCUSATE SODIUM [Concomitant]
     Active Substance: DOCUSATE SODIUM
     Indication: Product used for unknown indication
     Dosage: DOCUSATE SODIUM [OTC]?FORM STRENGTH: 100 MILLIGRAM
     Dates: start: 20230429
  19. MUCUS RELIEF [Concomitant]
     Active Substance: GUAIFENESIN
     Indication: Product used for unknown indication
     Dosage: TAKE 1 TABLET BY MOUTH TWICE DAILY AS NEEDED?MUCUS RELIEF ER (GUAIFENESIN) (OTC]
     Dates: start: 20230213
  20. LOSARTAN [Concomitant]
     Active Substance: LOSARTAN
     Indication: Product used for unknown indication
     Dosage: EVERY DAY; 09:00 AM?FORM STRENGTH: 25 MILLIGRAM
     Route: 048
     Dates: start: 20230213
  21. BENADRYL [Concomitant]
     Active Substance: DIPHENHYDRAMINE HYDROCHLORIDE
     Indication: Product used for unknown indication
     Dosage: TAKE 1 TAB BY MOUTH AS NEEDED EVERY 4-6 HOURS OR LIQUID 12.5 MG/ML 2 TSP BY MOUTH EVERY 4-6 HOURS...
     Dates: start: 20230306
  22. MAGNESIUM OXIDE [Concomitant]
     Active Substance: MAGNESIUM OXIDE
     Indication: Product used for unknown indication
     Dosage: AT BEDTIME; 09:00 PM?FORM STRENGTH: 500 MILLIGRAM
     Route: 048
     Dates: start: 20230213
  23. POTASSIUM CHLORIDE [Concomitant]
     Active Substance: POTASSIUM CHLORIDE
     Indication: Product used for unknown indication
     Dosage: TABLET,ER PARTICLES/CRYSTALS; 10 MEQ
     Dates: start: 20230213
  24. MELATONIN [Concomitant]
     Active Substance: MELATONIN
     Indication: Product used for unknown indication
     Dosage: TAKE 1 TABLET BY MOUTH AT BEDTIME.?FORM STRENGTH: 5 MILLIGRAM
     Route: 048
     Dates: start: 20230213
  25. FUROSEMIDE [Concomitant]
     Active Substance: FUROSEMIDE
     Indication: Product used for unknown indication
     Dosage: EVERY DAY; 09:00 AM?FORM STRENGTH: 20 MILLIGRAM
     Route: 048
     Dates: start: 20230213

REACTIONS (12)
  - Hip fracture [Unknown]
  - Rhinitis allergic [Unknown]
  - Lower limb fracture [Not Recovered/Not Resolved]
  - Dementia [Unknown]
  - Insomnia [Unknown]
  - Psoriasis [Unknown]
  - Osteoporosis [Unknown]
  - Major depression [Unknown]
  - Essential hypertension [Unknown]
  - Vitamin D deficiency [Unknown]
  - Constipation [Unknown]
  - Fall [Not Recovered/Not Resolved]

NARRATIVE: CASE EVENT DATE: 20231201
